FAERS Safety Report 8926854 (Version 1)
Quarter: 2012Q4

REPORT INFORMATION
  Report Type: Report from Study
  Country: US (occurrence: US)
  Receive Date: 20121127
  Receipt Date: 20121127
  Transmission Date: 20130627
  Serious: Yes (Hospitalization)
  Sender: FDA-Public Use
  Company Number: US-GILEAD-2012-0065042

PATIENT
  Age: 55 Year
  Sex: Female

DRUGS (3)
  1. EMTRICITABINE/TENOFOVIR DISOPROXIL FUMARATE [Suspect]
     Indication: HIV INFECTION
     Dosage: 500 mg, QD
     Route: 048
     Dates: start: 20101011
  2. RITONAVIR [Suspect]
     Indication: HIV INFECTION
     Dosage: 100 mg, QD
     Route: 048
     Dates: start: 20101011
  3. DARUNAVIR [Suspect]
     Indication: HIV INFECTION
     Dosage: 800 mg, QD
     Route: 048
     Dates: start: 20101011

REACTIONS (1)
  - Impaired gastric emptying [Recovered/Resolved]
